FAERS Safety Report 14963395 (Version 1)
Quarter: 2018Q2

REPORT INFORMATION
  Report Type: Spontaneous
  Country: US (occurrence: US)
  Receive Date: 20180510
  Receipt Date: 20180510
  Transmission Date: 20180711
  Serious: Yes (Hospitalization)
  Sender: FDA-Public Use
  Company Number: None

PATIENT
  Age: 2 Year
  Sex: Female

DRUGS (1)
  1. CHILDRENS DAYTIME COLD AND COUGH [Suspect]
     Active Substance: DEXTROMETHORPHAN HYDROBROMIDE\PHENYLEPHRINE HYDROCHLORIDE
     Indication: COUGH
     Dosage: ?          QUANTITY:5 ML;OTHER FREQUENCY:ONCE;?
     Route: 048
     Dates: start: 20180505

REACTIONS (5)
  - Somnolence [None]
  - Syncope [None]
  - Vomiting [None]
  - Opiates positive [None]
  - Oxygen saturation decreased [None]

NARRATIVE: CASE EVENT DATE: 20180505
